FAERS Safety Report 5620617-6 (Version None)
Quarter: 2008Q1

REPORT INFORMATION
  Report Type: 
  Country: None (occurrence: None)
  Receive Date: 20080208
  Receipt Date: 20080131
  Transmission Date: 20080703
  Serious: Yes (Hospitalization)
  Sender: FDA-Public Use
  Company Number: IT-BAYER-200811046GPV

PATIENT
  Age: 56 Year
  Sex: Male

DRUGS (6)
  1. ACETYLSALICYLIC ACID SRT [Suspect]
     Indication: PROPHYLAXIS
     Dosage: TOTAL DAILY DOSE: 100 MG  UNIT DOSE: 100 MG
     Route: 048
     Dates: start: 20030101, end: 20071216
  2. SINTROM (ACENOCUMAROLE) [Suspect]
     Indication: PROPHYLAXIS
     Route: 048
     Dates: start: 20030101, end: 20071216
  3. SELOKEN (METOPROLOLE) [Concomitant]
     Indication: MYOCARDIAL ISCHAEMIA
     Dosage: TOTAL DAILY DOSE: 200 MG  UNIT DOSE: 200 MG
     Route: 048
  4. IRBESARTAN + HYDROCHLOROTHIAZIDE [Concomitant]
     Indication: MYOCARDIAL ISCHAEMIA
     Dosage: TOTAL DAILY DOSE: 150 MG  UNIT DOSE: 150 MG
     Route: 048
  5. MONOKET [Concomitant]
     Indication: MYOCARDIAL ISCHAEMIA
     Dosage: TOTAL DAILY DOSE: 40 MG  UNIT DOSE: 40 MG
     Route: 048
  6. ESKIM (OMEGA POLIENOICI) [Concomitant]
     Indication: HYPERLIPIDAEMIA
     Dosage: TOTAL DAILY DOSE: 1000 MG  UNIT DOSE: 1000 MG
     Route: 048

REACTIONS (2)
  - HAEMORRHAGIC ANAEMIA [None]
  - RECTAL HAEMORRHAGE [None]
